FAERS Safety Report 4925363-X (Version None)
Quarter: 2006Q1

REPORT INFORMATION
  Report Type: 
  Country: None (occurrence: None)
  Receive Date: 20060228
  Receipt Date: 20050203
  Transmission Date: 20060701
  Serious: No
  Sender: FDA-Public Use
  Company Number: US-GLAXOSMITHKLINE-A0544503A

PATIENT
  Age: 43 Year
  Sex: Female
  Weight: 61.4 kg

DRUGS (8)
  1. LAMICTAL [Suspect]
     Indication: BIPOLAR DISORDER
     Dosage: 300MG PER DAY
     Route: 048
     Dates: start: 20040114, end: 20050201
  2. PROVIGIL [Concomitant]
     Route: 065
  3. WELLBUTRIN XL [Concomitant]
     Route: 048
  4. VALTREX [Concomitant]
     Route: 048
  5. DARVOCET [Concomitant]
     Route: 065
  6. TENORMIN [Concomitant]
     Route: 065
  7. COUMADIN [Concomitant]
     Route: 065
  8. DIGITEK [Concomitant]
     Route: 065

REACTIONS (2)
  - RASH [None]
  - SKIN LESION [None]
